FAERS Safety Report 19770637 (Version 1)
Quarter: 2021Q3

REPORT INFORMATION
  Report Type: Spontaneous
  Country: US (occurrence: US)
  Receive Date: 20210901
  Receipt Date: 20210901
  Transmission Date: 20211014
  Serious: No
  Sender: FDA-Public Use
  Company Number: US-EMD SERONO-9260851

PATIENT
  Sex: Female

DRUGS (2)
  1. CETROTIDE [Suspect]
     Active Substance: CETRORELIX ACETATE
     Indication: PRODUCT USED FOR UNKNOWN INDICATION
  2. CETROTIDE [Suspect]
     Active Substance: CETRORELIX ACETATE

REACTIONS (3)
  - Off label use [Unknown]
  - Blood luteinising hormone increased [Unknown]
  - Drug ineffective [Unknown]
